FAERS Safety Report 5710018-4 (Version None)
Quarter: 2008Q2

REPORT INFORMATION
  Report Type: 
  Country: None (occurrence: None)
  Receive Date: 20080418
  Receipt Date: 20080408
  Transmission Date: 20081010
  Serious: Yes (Death, Other)
  Sender: FDA-Public Use
  Company Number: US-ELI_LILLY_AND_COMPANY-US200709003293

PATIENT
  Sex: Male

DRUGS (7)
  1. CYMBALTA [Suspect]
     Indication: PAIN
     Dosage: 30 MG, DAILY (1/D)
  2. CYMBALTA [Suspect]
     Dosage: 60 MG, DAILY (1/D)
  3. MEGACE [Concomitant]
     Indication: HOT FLUSH
  4. FENTANYL CITRATE [Concomitant]
     Indication: PAIN
  5. ALPRAZOLAM [Concomitant]
  6. TEMAZEPAM [Concomitant]
     Dosage: 60 MG, UNK
  7. RISPERDAL [Concomitant]

REACTIONS (3)
  - ASPARTATE AMINOTRANSFERASE INCREASED [None]
  - BLOOD ALKALINE PHOSPHATASE INCREASED [None]
  - DEATH [None]
